FAERS Safety Report 12477558 (Version 1)
Quarter: 2016Q2

REPORT INFORMATION
  Report Type: Spontaneous
  Country: IN (occurrence: IN)
  Receive Date: 20160617
  Receipt Date: 20160617
  Transmission Date: 20160815
  Serious: Yes (Other)
  Sender: FDA-Public Use
  Company Number: PHHY2016IN081045

PATIENT

DRUGS (5)
  1. DIGOXIN. [Suspect]
     Active Substance: DIGOXIN
     Indication: ATRIAL FLUTTER
  2. SOTALOL. [Suspect]
     Active Substance: SOTALOL
     Indication: FOETAL EXPOSURE DURING PREGNANCY
     Route: 064
  3. DIGOXIN. [Concomitant]
     Active Substance: DIGOXIN
     Indication: ATRIAL FLUTTER
     Route: 030
  4. SOTALOL. [Suspect]
     Active Substance: SOTALOL
     Indication: ATRIAL FLUTTER
  5. DIGOXIN. [Suspect]
     Active Substance: DIGOXIN
     Indication: FOETAL EXPOSURE DURING PREGNANCY
     Dosage: UNK
     Route: 064

REACTIONS (3)
  - Premature baby [Unknown]
  - Foetal exposure during pregnancy [Unknown]
  - No therapeutic response [Unknown]
